FAERS Safety Report 8369868-0 (Version None)
Quarter: 2012Q2

REPORT INFORMATION
  Report Type: 
  Country: None (occurrence: None)
  Receive Date: 20120518
  Receipt Date: 20120511
  Transmission Date: 20120825
  Serious: Yes (Other)
  Sender: FDA-Public Use
  Company Number: US-PFIZER INC-2012107848

PATIENT
  Sex: Male

DRUGS (2)
  1. INLYTA [Suspect]
     Dosage: 5 MG, 1X/DAY
     Dates: start: 20120409
  2. INLYTA [Suspect]
     Indication: RENAL CANCER
     Dosage: 5 MG, 1XDAY
     Dates: start: 20120221

REACTIONS (10)
  - GLOSSODYNIA [None]
  - DIABETES MELLITUS [None]
  - NAUSEA [None]
  - PAIN [None]
  - DECREASED APPETITE [None]
  - DYSPNOEA [None]
  - BLOOD GLUCOSE INCREASED [None]
  - ASTHENIA [None]
  - OROPHARYNGEAL PAIN [None]
  - FEELING ABNORMAL [None]
